FAERS Safety Report 18152048 (Version 2)
Quarter: 2020Q3

REPORT INFORMATION
  Report Type: Spontaneous
  Country: JP (occurrence: JP)
  Receive Date: 20200814
  Receipt Date: 20200828
  Transmission Date: 20201103
  Serious: Yes (Death)
  Sender: FDA-Public Use
  Company Number: JP-JNJFOC-20200811756

PATIENT
  Age: 68 Year
  Sex: Male

DRUGS (4)
  1. BAYASPIRIN [Concomitant]
     Active Substance: ASPIRIN
     Dosage: DOSE UNKNOWN
     Route: 048
  2. HALCION [Concomitant]
     Active Substance: TRIAZOLAM
     Dosage: DOSE UNKNOWN
     Route: 048
  3. ZYTIGA [Suspect]
     Active Substance: ABIRATERONE ACETATE
     Indication: PROSTATE CANCER
     Route: 048
     Dates: start: 201809, end: 202006
  4. CRESTOR [Concomitant]
     Active Substance: ROSUVASTATIN CALCIUM
     Dosage: DOSE UNKNOWN
     Route: 048

REACTIONS (1)
  - Sudden death [Fatal]
